FAERS Safety Report 5848870-4 (Version None)
Quarter: 2008Q3

REPORT INFORMATION
  Report Type: 
  Country: None (occurrence: None)
  Receive Date: 20080818
  Receipt Date: 20080806
  Transmission Date: 20090109
  Serious: Yes (Hospitalization)
  Sender: FDA-Public Use
  Company Number: JP-PFIZER INC-2008064035

PATIENT
  Sex: Female

DRUGS (7)
  1. AZULFIDINE EN-TABS [Suspect]
     Indication: RHEUMATOID ARTHRITIS
     Route: 048
     Dates: start: 20080610, end: 20080722
  2. OLMESARTAN MEDOXOMIL [Suspect]
     Indication: RENAL DISORDER
     Route: 048
     Dates: start: 20080715, end: 20080722
  3. ALFAROL [Concomitant]
     Indication: HYPOCALCAEMIA
     Route: 048
  4. ALDACTONE [Concomitant]
  5. ALENDRONIC ACID [Concomitant]
     Route: 048
     Dates: start: 20070101, end: 20080722
  6. KREMEZIN [Concomitant]
     Indication: RENAL FAILURE CHRONIC
     Route: 048
     Dates: start: 20080415, end: 20080722
  7. SOLITA-T3 INJECTION [Concomitant]

REACTIONS (1)
  - RENAL DISORDER [None]
